FAERS Safety Report 16846231 (Version 4)
Quarter: 2021Q4

REPORT INFORMATION
  Report Type: Spontaneous
  Country: US (occurrence: US)
  Receive Date: 20190924
  Receipt Date: 20211204
  Transmission Date: 20220303
  Serious: No
  Sender: FDA-Public Use
  Company Number: US-SA-2019SA265182

PATIENT
  Age: 39 Year
  Sex: Male

DRUGS (2)
  1. ELOCTATE [Suspect]
     Active Substance: (1-743)-(1638-2332)-BLOOD-COAGULATION FACTOR VIII (SYNTHETIC HUMAN) FUSION PROTEIN WITH IMMUNOGLOBUL
     Dosage: 4500 IU
     Route: 042
  2. ELOCTATE [Suspect]
     Active Substance: (1-743)-(1638-2332)-BLOOD-COAGULATION FACTOR VIII (SYNTHETIC HUMAN) FUSION PROTEIN WITH IMMUNOGLOBUL
     Dosage: 4500 IU
     Route: 042

REACTIONS (5)
  - Joint injury [Recovered/Resolved]
  - Soft tissue haemorrhage [Unknown]
  - Skin discolouration [Unknown]
  - Ligament sprain [Unknown]
  - Contusion [Recovered/Resolved]

NARRATIVE: CASE EVENT DATE: 20190910
